FAERS Safety Report 6688730-2 (Version None)
Quarter: 2010Q2

REPORT INFORMATION
  Report Type: 
  Country: None (occurrence: None)
  Receive Date: 20100420
  Receipt Date: 20100413
  Transmission Date: 20101027
  Serious: Yes (Other)
  Sender: FDA-Public Use
  Company Number: A0855548A

PATIENT
  Sex: Male
  Weight: 20 kg

DRUGS (1)
  1. SERETIDE [Suspect]
     Indication: BRONCHITIS
     Route: 065
     Dates: start: 20090901, end: 20090901

REACTIONS (1)
  - AGGRESSION [None]
